FAERS Safety Report 21454217 (Version 3)
Quarter: 2022Q4

REPORT INFORMATION
  Report Type: Report from Study
  Country: AU (occurrence: AU)
  Receive Date: 20221013
  Receipt Date: 20221102
  Transmission Date: 20230113
  Serious: Yes (Hospitalization)
  Sender: FDA-Public Use
  Company Number: AU-GILEAD-2022-0601040

PATIENT
  Sex: Male
  Weight: 79 kg

DRUGS (1)
  1. SACITUZUMAB GOVITECAN [Suspect]
     Active Substance: SACITUZUMAB GOVITECAN
     Indication: Bladder transitional cell carcinoma
     Dosage: 10 MG/KG D1,D8 21 DAY CYCLE
     Route: 042
     Dates: start: 20220825, end: 20221006

REACTIONS (2)
  - Cellulitis [Recovered/Resolved]
  - Abscess limb [Recovered/Resolved]

NARRATIVE: CASE EVENT DATE: 20221010
